FAERS Safety Report 21316240 (Version 1)
Quarter: 2022Q3

REPORT INFORMATION
  Report Type: Spontaneous
  Country: IT (occurrence: IT)
  Receive Date: 20220910
  Receipt Date: 20220910
  Transmission Date: 20221026
  Serious: Yes (Hospitalization, Other)
  Sender: FDA-Public Use
  Company Number: IT-EMA-DD-20220901-7182781-082939

PATIENT
  Age: 54 Year
  Sex: Male

DRUGS (6)
  1. AZACITIDINE [Suspect]
     Active Substance: AZACITIDINE
     Indication: Acute myeloid leukaemia
     Dosage: 75MG PER SQUARE METER OF BODY-SURFACE AREA FROM DAY 1-7 OF 28 DAYS CYCLE
  2. AZACITIDINE [Suspect]
     Active Substance: AZACITIDINE
     Dosage: 10.7143 MILLIGRAM/SQ. METER
  3. VENETOCLAX [Suspect]
     Active Substance: VENETOCLAX
     Indication: Acute myeloid leukaemia
  4. VENETOCLAX [Suspect]
     Active Substance: VENETOCLAX
     Dosage: 100 MILLIGRAM, QD ON DAY 1
  5. VENETOCLAX [Suspect]
     Active Substance: VENETOCLAX
  6. VENETOCLAX [Suspect]
     Active Substance: VENETOCLAX
     Dosage: 400 MILLIGRAM, QD FROM DAY 3

REACTIONS (4)
  - Febrile neutropenia [Unknown]
  - Condition aggravated [Unknown]
  - General physical health deterioration [Unknown]
  - Off label use [Unknown]
